FAERS Safety Report 20047608 (Version 2)
Quarter: 2021Q4

REPORT INFORMATION
  Report Type: Report from Study
  Country: US (occurrence: None)
  Receive Date: 20211109
  Receipt Date: 20211124
  Transmission Date: 20220303
  Serious: Yes (Other)
  Sender: FDA-Public Use
  Company Number: US-Merck Healthcare KGaA-9154763

PATIENT
  Age: 64 Year
  Sex: Male

DRUGS (2)
  1. REBIF [Suspect]
     Active Substance: INTERFERON BETA-1A
     Indication: Multiple sclerosis
     Route: 058
     Dates: start: 2005
  2. REBIF [Suspect]
     Active Substance: INTERFERON BETA-1A
     Dosage: REBIF PREFILLED SYRINGE
     Route: 058
     Dates: start: 20081103

REACTIONS (5)
  - Cardiac pacemaker insertion [Unknown]
  - Aortic aneurysm [Unknown]
  - Bicuspid aortic valve [Unknown]
  - Injection site pain [Not Recovered/Not Resolved]
  - Needle fatigue [Unknown]

NARRATIVE: CASE EVENT DATE: 20190101
